FAERS Safety Report 5119913-0 (Version None)
Quarter: 2006Q3

REPORT INFORMATION
  Report Type: 
  Country: None (occurrence: None)
  Receive Date: 20060929
  Receipt Date: 20060913
  Transmission Date: 20061208
  Serious: Yes (Hospitalization)
  Sender: FDA-Public Use
  Company Number: ENT 2006-0128

PATIENT
  Age: 80 Year
  Sex: Male

DRUGS (4)
  1. COMTAN [Suspect]
     Dosage: ORAL
     Route: 048
  2. STABLON [Concomitant]
  3. TRIVASTAL [Suspect]
     Route: 048
  4. SINEMET [Suspect]
     Dosage: 40DF
     Route: 048

REACTIONS (5)
  - BACTERAEMIA [None]
  - CREATININE RENAL CLEARANCE DECREASED [None]
  - DIARRHOEA [None]
  - GENERAL PHYSICAL HEALTH DETERIORATION [None]
  - URINARY TRACT INFECTION [None]
